FAERS Safety Report 5246801-1 (Version None)
Quarter: 2007Q1

REPORT INFORMATION
  Report Type: 
  Country: None (occurrence: None)
  Receive Date: 20070226
  Receipt Date: 20070212
  Transmission Date: 20070707
  Serious: Yes (Hospitalization)
  Sender: FDA-Public Use
  Company Number: US-SHR-US-2007-005040

PATIENT
  Age: 48 Year
  Sex: Female

DRUGS (1)
  1. BETASERON [Suspect]
     Indication: SECONDARY PROGRESSIVE MULTIPLE SCLEROSIS
     Dosage: 8 MIU, EVERY 2D
     Route: 058
     Dates: start: 20030129

REACTIONS (2)
  - CORONARY ARTERY BYPASS [None]
  - INFLUENZA LIKE ILLNESS [None]
